FAERS Safety Report 9853600 (Version 2)
Quarter: 2014Q1

REPORT INFORMATION
  Report Type: Report from Study
  Country: US (occurrence: US)
  Receive Date: 20140129
  Receipt Date: 20140129
  Transmission Date: 20141002
  Serious: Yes (Hospitalization, Disabling)
  Sender: FDA-Public Use
  Company Number: US-ASTRAZENECA-2014SE02308

PATIENT
  Age: 28090 Day
  Sex: Female

DRUGS (20)
  1. TICAGRELOR [Suspect]
     Indication: CORONARY ARTERY DISEASE
     Route: 048
     Dates: start: 20111201
  2. GLUCOPHAGE [Concomitant]
     Indication: DIABETES MELLITUS
     Route: 048
  3. LIPITOR [Concomitant]
     Indication: HYPERCHOLESTEROLAEMIA
     Route: 048
  4. PROLENSA [Concomitant]
     Indication: CATARACT
     Route: 031
     Dates: start: 20130708
  5. CYCLOGYL [Concomitant]
     Indication: CATARACT
     Route: 031
     Dates: start: 20130827
  6. LASIX [Concomitant]
     Indication: FLUID RETENTION
     Route: 048
  7. SPIRIVA HANDIHALER [Concomitant]
     Indication: CHRONIC OBSTRUCTIVE PULMONARY DISEASE
     Route: 055
  8. POTASSIUM [Concomitant]
     Indication: SUPPLEMENTATION THERAPY
     Route: 048
  9. SINGULAIR [Concomitant]
     Indication: SEASONAL ALLERGY
     Route: 048
  10. ISOSORBIDE [Concomitant]
     Indication: CHEST PAIN
     Route: 048
  11. PULMICORT [Concomitant]
     Indication: CHRONIC OBSTRUCTIVE PULMONARY DISEASE
     Route: 048
  12. ALBUTEROL [Concomitant]
     Indication: CHRONIC OBSTRUCTIVE PULMONARY DISEASE
     Route: 055
  13. PRED FORTE [Concomitant]
     Indication: CATARACT
     Route: 031
     Dates: start: 20130827
  14. METOPROLOL [Concomitant]
     Indication: HYPERTENSION
     Route: 048
  15. PLETAL [Concomitant]
     Indication: INTERMITTENT CLAUDICATION
     Route: 048
     Dates: start: 20130827
  16. VERAPAMIL [Concomitant]
     Indication: ARRHYTHMIA
     Route: 048
  17. LYRICA [Concomitant]
     Indication: PAIN
     Route: 048
     Dates: start: 20110101
  18. RANITIDINE [Concomitant]
     Indication: GASTROOESOPHAGEAL REFLUX DISEASE
     Route: 048
  19. PANTOPRAZOLE [Concomitant]
     Indication: GASTROOESOPHAGEAL REFLUX DISEASE
     Route: 048
  20. ASA [Concomitant]
     Route: 048

REACTIONS (1)
  - Chronic obstructive pulmonary disease [Recovered/Resolved]
